FAERS Safety Report 18240719 (Version 2)
Quarter: 2020Q4

REPORT INFORMATION
  Report Type: Spontaneous
  Country: US (occurrence: US)
  Receive Date: 20200908
  Receipt Date: 20201112
  Transmission Date: 20210113
  Serious: Yes (Hospitalization, Other)
  Sender: FDA-Public Use
  Company Number: US-ALNYLAM PHARMACEUTICALS, INC.-ALN-2020-001579

PATIENT

DRUGS (2)
  1. GIVLAARI [Suspect]
     Active Substance: GIVOSIRAN SODIUM
     Indication: PORPHYRIA ACUTE
     Dosage: 1.25 MILLIGRAM/KILOGRAM
     Route: 042
  2. GIVLAARI [Suspect]
     Active Substance: GIVOSIRAN SODIUM
     Dosage: UNK
     Route: 058

REACTIONS (5)
  - Discomfort [Unknown]
  - Aspartate aminotransferase increased [Recovered/Resolved]
  - Abdominal distension [Unknown]
  - Alanine aminotransferase increased [Not Recovered/Not Resolved]
  - Pancreatitis acute [Unknown]
